FAERS Safety Report 7301692-X (Version None)
Quarter: 2011Q1

REPORT INFORMATION
  Report Type: 
  Country: None (occurrence: None)
  Receive Date: 20110208
  Receipt Date: 20110124
  Transmission Date: 20110831
  Serious: Yes (Hospitalization)
  Sender: FDA-Public Use
  Company Number: 2011MA000859

PATIENT
  Age: 86 Year
  Sex: Male

DRUGS (4)
  1. PREV MEDS [Concomitant]
  2. NAPROXEN [Suspect]
     Indication: OSTEOARTHRITIS
     Dates: start: 20080911, end: 20090529
  3. DICLOFENAC SODIUM [Suspect]
     Indication: OSTEOARTHRITIS
     Dosage: 25 MG;TID;PO
     Route: 048
     Dates: start: 20080708, end: 20100113
  4. IBUPROFEN [Concomitant]

REACTIONS (3)
  - LUNG NEOPLASM [None]
  - METASTASES TO LUNG [None]
  - PULMONARY EMBOLISM [None]
